FAERS Safety Report 5946205-X (Version None)
Quarter: 2008Q4

REPORT INFORMATION
  Report Type: 
  Country: None (occurrence: None)
  Receive Date: 20081106
  Receipt Date: 20081106
  Transmission Date: 20090506
  Serious: Yes (Other)
  Sender: FDA-Public Use
  Company Number: None

PATIENT
  Age: 59 Year
  Sex: Female
  Weight: 55.3388 kg

DRUGS (2)
  1. RECLAST [Suspect]
     Indication: OSTEOPENIA
  2. BONIVA [Suspect]
     Indication: STRESS FRACTURE

REACTIONS (5)
  - BONE PAIN [None]
  - CONDITION AGGRAVATED [None]
  - INTERVERTEBRAL DISC DISORDER [None]
  - MYALGIA [None]
  - PAIN [None]
